FAERS Safety Report 9714211 (Version 1)
Quarter: 2013Q4

REPORT INFORMATION
  Report Type: Spontaneous
  Country: US (occurrence: US)
  Receive Date: 20131126
  Receipt Date: 20131126
  Transmission Date: 20140711
  Serious: No
  Sender: FDA-Public Use
  Company Number: US-GILEAD-2008-0019423

PATIENT
  Age: 61 Year
  Sex: Female

DRUGS (12)
  1. LETAIRIS [Suspect]
     Indication: PULMONARY ARTERIAL HYPERTENSION
     Route: 048
     Dates: start: 20081021
  2. NORVASC [Concomitant]
  3. VIAGRA [Concomitant]
  4. VASOTEC [Concomitant]
  5. LOPRESSOR [Concomitant]
  6. WARFARIN [Concomitant]
  7. LASIX [Concomitant]
  8. PREVACID [Concomitant]
  9. EVOXAC [Concomitant]
  10. CALTRATE [Concomitant]
  11. K-DUR [Concomitant]
  12. FISH OIL [Concomitant]

REACTIONS (2)
  - Pain [Not Recovered/Not Resolved]
  - Nausea [Not Recovered/Not Resolved]
